FAERS Safety Report 5879678-1 (Version None)
Quarter: 2008Q3

REPORT INFORMATION
  Report Type: 
  Country: None (occurrence: None)
  Receive Date: 20080912
  Receipt Date: 20080829
  Transmission Date: 20090109
  Serious: Yes (Life-Threatening)
  Sender: FDA-Public Use
  Company Number: FR-MERCK-0809FRA00004

PATIENT
  Age: 63 Year
  Sex: Female

DRUGS (6)
  1. PRIMAXIN [Suspect]
     Indication: SEPSIS
     Route: 041
     Dates: start: 20080321, end: 20080402
  2. VORICONAZOLE [Suspect]
     Indication: BRONCHOPULMONARY ASPERGILLOSIS
     Route: 041
     Dates: start: 20080326, end: 20080402
  3. CISATRACURIUM BESYLATE [Concomitant]
     Indication: SEDATION
     Route: 042
     Dates: start: 20080313, end: 20080403
  4. KETAMINE HYDROCHLORIDE [Concomitant]
     Route: 041
     Dates: start: 20080313, end: 20080402
  5. FLUCONAZOLE [Concomitant]
     Indication: BRONCHOPULMONARY ASPERGILLOSIS
     Route: 042
     Dates: start: 20080322, end: 20080327
  6. ESOMEPRAZOLE MAGNESIUM [Concomitant]
     Route: 048
     Dates: start: 20080327, end: 20080404

REACTIONS (2)
  - BRADYCARDIA [None]
  - BRONCHOPULMONARY ASPERGILLOSIS [None]
